FAERS Safety Report 21376237 (Version 1)
Quarter: 2022Q3

REPORT INFORMATION
  Report Type: Spontaneous
  Country: CZ (occurrence: CZ)
  Receive Date: 20220926
  Receipt Date: 20220926
  Transmission Date: 20221027
  Serious: Yes (Other)
  Sender: FDA-Public Use
  Company Number: CZ-BRISTOL-MYERS SQUIBB COMPANY-2022-110482

PATIENT
  Age: 50 Year
  Sex: Male

DRUGS (2)
  1. NIVOLUMAB [Suspect]
     Active Substance: NIVOLUMAB
     Indication: Malignant melanoma
     Dosage: DOSE : A TOTAL OF TWO APPLICATIONS;     FREQ : UNAVAILABLE
     Route: 065
     Dates: start: 202105, end: 2021
  2. IPILIMUMAB [Suspect]
     Active Substance: IPILIMUMAB
     Indication: Malignant melanoma
     Dosage: DOSE : A TOTAL OF TWO APPLICATIONS;     FREQ : UNAVAILABLE
     Route: 065
     Dates: start: 202105, end: 2021

REACTIONS (15)
  - Diarrhoea [Recovered/Resolved]
  - Haemorrhoids thrombosed [Recovering/Resolving]
  - Proctalgia [Recovering/Resolving]
  - Genital rash [Unknown]
  - Dyspepsia [Unknown]
  - Weight decreased [Unknown]
  - Abdominal pain upper [Unknown]
  - Skin disorder [Unknown]
  - Cachexia [Unknown]
  - Hepatomegaly [Unknown]
  - Transaminases increased [Unknown]
  - Blood lactate dehydrogenase increased [Unknown]
  - General physical health deterioration [Unknown]
  - Malignant neoplasm progression [Unknown]
  - Intestinal metastasis [Unknown]

NARRATIVE: CASE EVENT DATE: 20210101
